FAERS Safety Report 14028585 (Version 1)
Quarter: 2017Q3

REPORT INFORMATION
  Report Type: Spontaneous
  Country: US (occurrence: US)
  Receive Date: 20170930
  Receipt Date: 20170930
  Transmission Date: 20171128
  Serious: No
  Sender: FDA-Public Use
  Company Number: US-SA-2017SA056043

PATIENT
  Age: 41 Year
  Sex: Female

DRUGS (5)
  1. SERTRALINE HYDROCHLORIDE. [Concomitant]
     Active Substance: SERTRALINE HYDROCHLORIDE
  2. NORTRIPTYLINE HYDROCHLORIDE. [Concomitant]
     Active Substance: NORTRIPTYLINE HYDROCHLORIDE
  3. PRENATAL [Concomitant]
     Active Substance: VITAMINS
  4. AUBAGIO [Suspect]
     Active Substance: TERIFLUNOMIDE
     Indication: MULTIPLE SCLEROSIS
     Route: 048
  5. LEVOTHYROXINE SODIUM. [Concomitant]
     Active Substance: LEVOTHYROXINE SODIUM

REACTIONS (5)
  - Insomnia [Unknown]
  - Fatigue [Unknown]
  - Temperature intolerance [Unknown]
  - Limb discomfort [Unknown]
  - Nerve injury [Unknown]

NARRATIVE: CASE EVENT DATE: 20170327
